FAERS Safety Report 7845388-4 (Version None)
Quarter: 2011Q4

REPORT INFORMATION
  Report Type: 
  Country: None (occurrence: None)
  Receive Date: 20111017
  Receipt Date: 20111007
  Transmission Date: 20120403
  Serious: Yes (Hospitalization, Other)
  Sender: FDA-Public Use
  Company Number: 2011SP019411

PATIENT
  Age: 34 Year
  Sex: Female
  Weight: 89.8122 kg

DRUGS (12)
  1. TOPAMAX [Concomitant]
  2. ZYRTEC [Concomitant]
  3. NUVARING [Suspect]
  4. ZOMIG [Concomitant]
  5. TRICOR [Concomitant]
  6. EFFEXOR [Concomitant]
  7. NUVARING [Suspect]
     Indication: MENSTRUAL CYCLE MANAGEMENT
     Dates: start: 20050801
  8. NUVARING [Suspect]
     Indication: MENORRHAGIA
     Dates: start: 20050801
  9. NUVARING [Suspect]
     Indication: CONTRACEPTION
     Dates: start: 20050801
  10. NUVARING [Suspect]
     Indication: MENSTRUAL CYCLE MANAGEMENT
     Dates: start: 20090201, end: 20090515
  11. NUVARING [Suspect]
     Indication: MENORRHAGIA
     Dates: start: 20090201, end: 20090515
  12. NUVARING [Suspect]
     Indication: CONTRACEPTION
     Dates: start: 20090201, end: 20090515

REACTIONS (22)
  - OROPHARYNGEAL PAIN [None]
  - DEEP VEIN THROMBOSIS [None]
  - CYST RUPTURE [None]
  - LOSS OF EMPLOYMENT [None]
  - TONSILLAR HYPERTROPHY [None]
  - ANXIETY [None]
  - DIASTOLIC DYSFUNCTION [None]
  - GASTROINTESTINAL PAIN [None]
  - PULMONARY EMBOLISM [None]
  - TONSILLAR DISORDER [None]
  - OVARIAN CYST [None]
  - STATUS MIGRAINOSUS [None]
  - NEPHROPATHY [None]
  - INSOMNIA [None]
  - DEPRESSION [None]
  - MUSCULOSKELETAL PAIN [None]
  - ADENOMYOSIS [None]
  - DYSPNOEA [None]
  - NON-CARDIAC CHEST PAIN [None]
  - SINUSITIS [None]
  - MUSCLE SPASMS [None]
  - NIGHTMARE [None]
